FAERS Safety Report 6571526-X (Version None)
Quarter: 2010Q1

REPORT INFORMATION
  Report Type: 
  Country: None (occurrence: None)
  Receive Date: 20100205
  Receipt Date: 20100202
  Transmission Date: 20100710
  Serious: Yes (Hospitalization)
  Sender: FDA-Public Use
  Company Number: JP-BRACCO-003011

PATIENT
  Age: 70 Year
  Sex: Male

DRUGS (8)
  1. IOPAMIDOL [Suspect]
     Indication: COMPUTERISED TOMOGRAM
     Dosage: 1.7ML/SEC
     Route: 042
     Dates: start: 20091204, end: 20091204
  2. IOPAMIDOL [Suspect]
     Indication: LARGE INTESTINE CARCINOMA
     Dosage: 1.7ML/SEC
     Route: 042
     Dates: start: 20091204, end: 20091204
  3. DIGOSIN [Concomitant]
     Indication: ATRIAL FIBRILLATION
     Route: 048
     Dates: start: 19990101
  4. CORTICOSTEROIDS [Concomitant]
     Route: 065
     Dates: start: 20091204, end: 20091206
  5. BUFFERIN [Concomitant]
     Indication: THROMBOSIS PROPHYLAXIS
     Route: 048
     Dates: start: 19990101
  6. LASIX [Concomitant]
     Indication: CARDIAC FAILURE
     Route: 048
     Dates: start: 19990101
  7. NITRODERM [Concomitant]
     Indication: CARDIAC FAILURE
     Route: 062
     Dates: start: 19990101
  8. LASIX [Concomitant]
     Route: 042
     Dates: start: 20091207, end: 20091213

REACTIONS (2)
  - CARDIAC FAILURE [None]
  - PULMONARY OEDEMA [None]
